FAERS Safety Report 8654214 (Version 10)
Quarter: 2014Q3

REPORT INFORMATION
  Report Type: Report from Study
  Country: LB (occurrence: LB)
  Receive Date: 20120709
  Receipt Date: 20140821
  Transmission Date: 20150326
  Serious: No
  Sender: FDA-Public Use
  Company Number: PHHY2012LB058411

PATIENT
  Age: 65 Year
  Sex: Male

DRUGS (2)
  1. RAVAMIL [Concomitant]
     Indication: HYPERTENSION
     Dosage: 1 DF, DAILY
     Route: 048
     Dates: start: 2009
  2. TASIGNA [Suspect]
     Active Substance: NILOTINIB
     Indication: CHRONIC MYELOID LEUKAEMIA
     Dosage: 800 MG, PER DAY
     Route: 048
     Dates: start: 20110224

REACTIONS (6)
  - Rash [Not Recovered/Not Resolved]
  - Dry skin [Not Recovered/Not Resolved]
  - Alopecia [Not Recovered/Not Resolved]
  - Fatigue [Recovering/Resolving]
  - Hyperglycaemia [Not Recovered/Not Resolved]
  - Granuloma skin [Not Recovered/Not Resolved]

NARRATIVE: CASE EVENT DATE: 201211
